FAERS Safety Report 11089490 (Version 3)
Quarter: 2015Q2

REPORT INFORMATION
  Report Type: Spontaneous
  Country: IT (occurrence: IT)
  Receive Date: 20150505
  Receipt Date: 20150526
  Transmission Date: 20150821
  Serious: Yes (Other)
  Sender: FDA-Public Use
  Company Number: IT-TEVA-558870ACC

PATIENT
  Age: 47 Year
  Sex: Female
  Weight: 112 kg

DRUGS (7)
  1. LEVOFLOXACINA EG - 500MG COMPRESSE RIVESTITE CON FILM - EG S.P.A. [Interacting]
     Active Substance: LEVOFLOXACIN
     Indication: PNEUMONITIS
     Dosage: 1 DOSAGE FORMS DAILY; 1 DF DAILY
     Route: 048
     Dates: start: 20150203, end: 20150211
  2. ATEM - 0,5 MG/2 ML SOLUZIONE PER NEBULIZZATORE [Concomitant]
     Indication: PRODUCT USED FOR UNKNOWN INDICATION
     Route: 055
  3. CLARITHROMYCIN. [Suspect]
     Active Substance: CLARITHROMYCIN
     Indication: PNEUMONITIS
     Dosage: 1000 MILLIGRAM DAILY; 1000 MG DAILY
     Route: 048
     Dates: start: 20150129, end: 20150207
  4. BRONCOVALEAS - 0,5% SOLUZIONE DA NEBULIZZARE [Concomitant]
     Indication: PRODUCT USED FOR UNKNOWN INDICATION
     Route: 055
  5. FLUIMUCIL [Concomitant]
     Active Substance: ACETYLCYSTEINE
     Indication: PRODUCT USED FOR UNKNOWN INDICATION
     Route: 055
  6. MEDROL - 16 MG COMPRESSE [Concomitant]
     Indication: PRODUCT USED FOR UNKNOWN INDICATION
     Route: 048
  7. CLENIL - 0,8 MG/2 ML SOSPENSIONE DA NEBULIZZARE [Concomitant]
     Indication: PRODUCT USED FOR UNKNOWN INDICATION
     Dosage: NEBULISER SUSPENSION
     Route: 055

REACTIONS (4)
  - Drug interaction [Unknown]
  - Tongue exfoliation [Recovered/Resolved]
  - Paraesthesia oral [Recovered/Resolved]
  - Angioedema [Recovered/Resolved]

NARRATIVE: CASE EVENT DATE: 20150205
